FAERS Safety Report 4390539-X (Version None)
Quarter: 2004Q2

REPORT INFORMATION
  Report Type: 
  Country: None (occurrence: None)
  Receive Date: 20040630
  Receipt Date: 20040617
  Transmission Date: 20050107
  Serious: Yes (Hospitalization)
  Sender: FDA-Public Use
  Company Number: 2004041536

PATIENT
  Age: 38 Year
  Sex: Female

DRUGS (2)
  1. RELPAX [Suspect]
     Indication: MIGRAINE
     Dosage: 40 MG (1 IN 1 D), ORAL
     Route: 048
  2. BENADRYL [Suspect]
     Indication: ILL-DEFINED DISORDER
     Dosage: 25 MG (1 IN 1 D)

REACTIONS (2)
  - DISORIENTATION [None]
  - DRUG INTERACTION [None]
